FAERS Safety Report 10182627 (Version 1)
Quarter: 2014Q2

REPORT INFORMATION
  Report Type: Spontaneous
  Country: CH (occurrence: None)
  Receive Date: 20140516
  Receipt Date: 20140516
  Transmission Date: 20141212
  Serious: Yes (Hospitalization, Other)
  Sender: FDA-Public Use
  Company Number: SYM-2014-20395

PATIENT
  Age: 45 Year
  Sex: Male

DRUGS (3)
  1. VENLAFAXINE (VENLAFAXINE) [Suspect]
     Indication: DEPRESSION
  2. ZOLPIDEM (ZOLPIDEM) [Suspect]
     Indication: SLEEP DISORDER
  3. SUMATRIPTAN [Suspect]
     Indication: MIGRAINE

REACTIONS (16)
  - Muscle twitching [None]
  - Clonus [None]
  - Panic attack [None]
  - Insomnia [None]
  - Road traffic accident [None]
  - Contusion [None]
  - Hypertension [None]
  - Tachycardia [None]
  - Dyskinesia [None]
  - Myoclonus [None]
  - Hyperreflexia [None]
  - Hyperhidrosis [None]
  - Hypercalcaemia [None]
  - Alanine aminotransferase increased [None]
  - Gamma-glutamyltransferase increased [None]
  - Overdose [None]
